FAERS Safety Report 5341021-4 (Version None)
Quarter: 2007Q2

REPORT INFORMATION
  Report Type: 
  Country: None (occurrence: None)
  Receive Date: 20070531
  Receipt Date: 20070524
  Transmission Date: 20071010
  Serious: Yes (Hospitalization)
  Sender: FDA-Public Use
  Company Number: US-AMGEN-US221093

PATIENT
  Sex: Female

DRUGS (2)
  1. ENBREL [Suspect]
     Indication: RHEUMATOID ARTHRITIS
     Route: 058
     Dates: start: 20060428
  2. METHOTREXATE SODIUM [Concomitant]
     Route: 065
     Dates: start: 20050101

REACTIONS (10)
  - ARTHRALGIA [None]
  - CATARACT [None]
  - DIPLOPIA [None]
  - FATIGUE [None]
  - OCULAR VASCULAR DISORDER [None]
  - OPTIC NEUROPATHY [None]
  - PUPILLARY REFLEX IMPAIRED [None]
  - STRABISMUS [None]
  - VISION BLURRED [None]
  - VISUAL BRIGHTNESS [None]
